FAERS Safety Report 12864606 (Version 1)
Quarter: 2016Q4

REPORT INFORMATION
  Report Type: Spontaneous
  Country: US (occurrence: US)
  Receive Date: 20161018
  Receipt Date: 20161018
  Transmission Date: 20170207
  Serious: No
  Sender: FDA-Public Use
  Company Number: None

PATIENT
  Age: 75 Year
  Sex: Male

DRUGS (15)
  1. DOXAZOSIN [Concomitant]
     Active Substance: DOXAZOSIN\DOXAZOSIN MESYLATE
  2. LORATADINE. [Concomitant]
     Active Substance: LORATADINE
  3. MONTELUKAST [Concomitant]
     Active Substance: MONTELUKAST SODIUM
  4. OXYCODONE [Concomitant]
     Active Substance: OXYCODONE
  5. PROCHLORPERAZINE. [Concomitant]
     Active Substance: PROCHLORPERAZINE
  6. ATORVASTATIN [Concomitant]
     Active Substance: ATORVASTATIN
  7. CHOLECALCIFEROL [Concomitant]
     Active Substance: CHOLECALCIFEROL
  8. NEULASTA [Concomitant]
     Active Substance: PEGFILGRASTIM
  9. TADALAFIL [Concomitant]
     Active Substance: TADALAFIL
  10. ONDANSETRON [Concomitant]
     Active Substance: ONDANSETRON
  11. ALBUTEROL. [Concomitant]
     Active Substance: ALBUTEROL
  12. ASPIRIN. [Concomitant]
     Active Substance: ASPIRIN
  13. METOPROLOL. [Concomitant]
     Active Substance: METOPROLOL
  14. RITUXIMAB [Concomitant]
     Active Substance: RITUXIMAB
  15. BENDAMUSTINE [Suspect]
     Active Substance: BENDAMUSTINE
     Indication: LYMPHOMA
     Dosage: BENDAMUSTINE 90 MG/M2 - MONTHLY - IV
     Route: 042
     Dates: start: 20160713

REACTIONS (2)
  - Injection site erythema [None]
  - Injection site phlebitis [None]

NARRATIVE: CASE EVENT DATE: 20160713
